FAERS Safety Report 7929976 (Version 18)
Quarter: 2014Q1

REPORT INFORMATION
  Report Type: Spontaneous
  Country: US (occurrence: US)
  Receive Date: 20110504
  Receipt Date: 20140305
  Transmission Date: 20141002
  Serious: Yes (Hospitalization, Other)
  Sender: FDA-Public Use
  Company Number: PHEH2011US00470

PATIENT
  Sex: Male

DRUGS (25)
  1. ZOMETA [Suspect]
     Indication: NON-SMALL CELL LUNG CANCER METASTATIC
     Dosage: 4 MG, QMO
     Route: 041
  2. PANTOPRAZOLE [Concomitant]
     Dosage: 40 MG, BID
     Route: 048
  3. METOPROLOL [Concomitant]
     Dosage: 12.5 MG, BID
  4. ALPRAZOLAM [Concomitant]
  5. VITAMIN B12 [Concomitant]
  6. VITAMIN D [Concomitant]
  7. LORAZEPAM [Concomitant]
     Dosage: 1 MG, Q6H
     Route: 042
  8. LEVBID [Concomitant]
  9. PRECEDEX [Concomitant]
  10. CLINDAMYCIN [Concomitant]
  11. MOTRIN [Concomitant]
     Dosage: 800 MG, Q6H
     Route: 048
  12. XANAX [Concomitant]
     Dosage: 1 MG, PRN
     Route: 048
  13. LORTAB [Concomitant]
     Dosage: 1 DF, Q4H
     Route: 048
  14. FLEXERIL [Concomitant]
     Dosage: 10 MG, TID
  15. NASACORT [Concomitant]
     Dosage: 55 UG, QD
     Route: 045
  16. DEXAMETHASONE [Concomitant]
  17. ATENOLOL [Concomitant]
  18. AMBIEN CR [Concomitant]
  19. HYDROCODONE [Concomitant]
  20. GEMCITABINE [Concomitant]
  21. CHEMOTHERAPEUTICS [Concomitant]
  22. BEVACIZUMAB [Concomitant]
  23. GEMZAR [Concomitant]
  24. PALONOSETRON [Concomitant]
  25. OXYCODONE [Concomitant]

REACTIONS (126)
  - Hypertension [Unknown]
  - Tooth abscess [Unknown]
  - Jaw fracture [Unknown]
  - Pain in jaw [Unknown]
  - Respiratory failure [Unknown]
  - Pneumonia [Unknown]
  - Cardiomegaly [Unknown]
  - Haematochezia [Unknown]
  - Depression [Unknown]
  - Metastases to spine [Unknown]
  - Paraesthesia oral [Unknown]
  - Weight decreased [Unknown]
  - Acute myocardial infarction [Unknown]
  - Shock haemorrhagic [Unknown]
  - Kyphosis [Unknown]
  - Spinal osteoarthritis [Unknown]
  - Radiculopathy [Unknown]
  - Seborrhoeic keratosis [Unknown]
  - Pulmonary mass [Unknown]
  - Melaena [Unknown]
  - Oesophagitis [Unknown]
  - Adrenal mass [Unknown]
  - Anhedonia [Unknown]
  - Dysarthria [Unknown]
  - Lymphadenopathy [Unknown]
  - Insomnia [Unknown]
  - Osteosclerosis [Unknown]
  - Lung neoplasm malignant [Unknown]
  - Diastolic dysfunction [Unknown]
  - Pulmonary hypertension [Unknown]
  - Oral candidiasis [Recovered/Resolved]
  - Tendonitis [Unknown]
  - Gastrooesophageal reflux disease [Unknown]
  - Cellulitis [Unknown]
  - Neuropathy peripheral [Unknown]
  - Sinusitis [Unknown]
  - Nodule [Unknown]
  - Adrenal disorder [Unknown]
  - Pulmonary granuloma [Unknown]
  - Pleural effusion [Unknown]
  - Hepatic steatosis [Unknown]
  - Soft tissue mass [Unknown]
  - Onychomycosis [Unknown]
  - Osteoarthritis [Unknown]
  - Arteriosclerosis coronary artery [Unknown]
  - Adrenal calcification [Unknown]
  - Metastases to adrenals [Unknown]
  - Diarrhoea haemorrhagic [Unknown]
  - Osteoporosis [Unknown]
  - Vascular calcification [Unknown]
  - Pancreatic atrophy [Unknown]
  - Carotid arteriosclerosis [Unknown]
  - Dyslipidaemia [Unknown]
  - Gastric ulcer haemorrhage [Unknown]
  - Duodenitis [Unknown]
  - Gastritis [Unknown]
  - Rectal haemorrhage [Unknown]
  - Haemorrhoids [Unknown]
  - Conjunctivitis [Unknown]
  - Pancreatolithiasis [Unknown]
  - Skin mass [Unknown]
  - Abdominal wall mass [Unknown]
  - Cerebral atrophy [Unknown]
  - Lung cancer metastatic [Unknown]
  - Malignant neoplasm progression [Unknown]
  - Ingrowing nail [Unknown]
  - Pain in extremity [Unknown]
  - Macrocytosis [Unknown]
  - Sinus disorder [Unknown]
  - Dizziness [Unknown]
  - Hyponatraemia [Unknown]
  - Malaise [Unknown]
  - Anaemia [Unknown]
  - Fatigue [Unknown]
  - Asthenia [Unknown]
  - Urinary hesitation [Unknown]
  - Micturition disorder [Unknown]
  - Hypokinesia [Unknown]
  - Hypotension [Unknown]
  - Back pain [Unknown]
  - Ear pain [Unknown]
  - Chest pain [Unknown]
  - Pollakiuria [Unknown]
  - Nasopharyngitis [Unknown]
  - Arthralgia [Unknown]
  - Intervertebral disc disorder [Unknown]
  - Abdominal pain upper [Unknown]
  - Hyperlipidaemia [Unknown]
  - Joint swelling [Unknown]
  - Erythema [Unknown]
  - Nausea [Unknown]
  - Constipation [Unknown]
  - Adrenal haemorrhage [Unknown]
  - Gastrointestinal haemorrhage [Unknown]
  - Haematemesis [Unknown]
  - Duodenal ulcer [Unknown]
  - Osteonecrosis of jaw [Unknown]
  - Pain [Unknown]
  - Infection [Unknown]
  - Deformity [Unknown]
  - Injury [Unknown]
  - Emotional distress [Unknown]
  - Anxiety [Unknown]
  - Osteomyelitis [Unknown]
  - Pancreatic cyst [Unknown]
  - Aortic calcification [Unknown]
  - Sciatica [Unknown]
  - Intervertebral disc degeneration [Unknown]
  - Intervertebral disc protrusion [Unknown]
  - Facet joint syndrome [Unknown]
  - Metastatic neoplasm [Unknown]
  - Chronic obstructive pulmonary disease [Unknown]
  - Dyspnoea [Unknown]
  - Pulmonary fibrosis [Unknown]
  - Emphysema [Unknown]
  - Diverticulum intestinal [Unknown]
  - Metastases to bone [Unknown]
  - Osteolysis [Unknown]
  - Cerebrosclerosis [Unknown]
  - Atelectasis [Unknown]
  - Prostatic calcification [Unknown]
  - Tachycardia [Unknown]
  - Hypoaesthesia [Unknown]
  - Exposed bone in jaw [Unknown]
  - Loose tooth [Unknown]
  - Sinus congestion [Unknown]
